FAERS Safety Report 6035190-0 (Version None)
Quarter: 2009Q1

REPORT INFORMATION
  Report Type: 
  Country: None (occurrence: None)
  Receive Date: 20090112
  Receipt Date: 20090102
  Transmission Date: 20090719
  Serious: Yes (Hospitalization)
  Sender: FDA-Public Use
  Company Number: NL-ABBOTT-09P-114-0495660-00

PATIENT
  Sex: Female

DRUGS (12)
  1. DEPAKENE [Suspect]
     Indication: EPILEPSY
     Route: 048
  2. DEPAKENE [Suspect]
     Route: 048
  3. TEGRETOL [Suspect]
     Indication: EPILEPSY
     Route: 048
  4. TEGRETOL [Suspect]
     Route: 048
  5. PHENOBARBITAL [Suspect]
     Indication: EPILEPSY
     Route: 048
  6. PHENOBARBITAL [Suspect]
     Route: 048
  7. PHENOBARBITAL ^CREAT^ [Suspect]
     Indication: EPILEPSY
     Route: 048
  8. PHENOBARBITAL ^CREAT^ [Suspect]
     Route: 048
  9. AUGMENTIN '125' [Suspect]
     Indication: DRUG USE FOR UNKNOWN INDICATION
     Route: 048
     Dates: end: 20081016
  10. CLINDAMYCIN HCL [Suspect]
     Indication: DRUG USE FOR UNKNOWN INDICATION
     Route: 048
     Dates: end: 20081016
  11. AUGMENTIN '125' [Concomitant]
     Route: 048
     Dates: end: 20081016
  12. CLINDAMYCINE PCH [Concomitant]
     Indication: DRUG USE FOR UNKNOWN INDICATION
     Route: 048
     Dates: end: 20081016

REACTIONS (3)
  - COMA [None]
  - HYPERAMMONAEMIA [None]
  - METABOLIC ENCEPHALOPATHY [None]
